FAERS Safety Report 23528363 (Version 1)
Quarter: 2024Q1

REPORT INFORMATION
  Report Type: Spontaneous
  Country: US (occurrence: US)
  Receive Date: 20240215
  Receipt Date: 20240215
  Transmission Date: 20240410
  Serious: Yes (Other)
  Sender: FDA-Public Use
  Company Number: US-LEX-000167

PATIENT
  Age: 85 Year
  Sex: Male

DRUGS (1)
  1. INPEFA [Suspect]
     Active Substance: SOTAGLIFLOZIN
     Indication: Type 2 diabetes mellitus
     Route: 048
     Dates: start: 20240123, end: 20240207

REACTIONS (2)
  - Renal injury [Recovering/Resolving]
  - Drug titration error [Unknown]

NARRATIVE: CASE EVENT DATE: 20240123
